FAERS Safety Report 19673476 (Version 1)
Quarter: 2021Q3

REPORT INFORMATION
  Report Type: Spontaneous
  Country: CN (occurrence: CN)
  Receive Date: 20210809
  Receipt Date: 20210809
  Transmission Date: 20211014
  Serious: Yes (Hospitalization, Disabling, Other)
  Sender: FDA-Public Use
  Company Number: CN-B.I. PHARMACEUTICALS,INC./RIDGEFIELD-2021-BI-119722

PATIENT
  Age: 72 Year
  Sex: Female
  Weight: 54 kg

DRUGS (1)
  1. GILOTRIF [Suspect]
     Active Substance: AFATINIB
     Indication: DRUG THERAPY
     Route: 048
     Dates: start: 20210531, end: 20210609

REACTIONS (6)
  - Shock [Recovering/Resolving]
  - Vomiting [Recovering/Resolving]
  - Drug-induced liver injury [Recovering/Resolving]
  - Metabolic acidosis [Recovering/Resolving]
  - Diarrhoea [Recovering/Resolving]
  - Acute kidney injury [Recovering/Resolving]

NARRATIVE: CASE EVENT DATE: 20210609
